FAERS Safety Report 7752365-0 (Version None)
Quarter: 2011Q3

REPORT INFORMATION
  Report Type: 
  Country: None (occurrence: None)
  Receive Date: 20110913
  Receipt Date: 20110829
  Transmission Date: 20111222
  Serious: Yes (Death)
  Sender: FDA-Public Use
  Company Number: JP-ACCORD-010535

PATIENT
  Age: 68 Year
  Sex: Male

DRUGS (1)
  1. DOCETAXEL [Suspect]
     Indication: NEOPLASM MALIGNANT

REACTIONS (2)
  - DRUG INEFFECTIVE [None]
  - PNEUMONIA ASPIRATION [None]
